FAERS Safety Report 24936309 (Version 1)
Quarter: 2025Q1

REPORT INFORMATION
  Report Type: Report from Study
  Country: US (occurrence: US)
  Receive Date: 20250206
  Receipt Date: 20250206
  Transmission Date: 20250409
  Serious: Yes (Other)
  Sender: EXELIXIS
  Company Number: US-EXELIXIS-EXL-2024-002544

PATIENT
  Sex: Male
  Weight: 92.789 kg

DRUGS (2)
  1. CABOMETYX [Suspect]
     Active Substance: CABOZANTINIB S-MALATE
     Indication: Renal cancer
     Dosage: 40 MG, QD
     Route: 048
     Dates: start: 20241126
  2. ZOFRAN [Concomitant]
     Active Substance: ONDANSETRON HYDROCHLORIDE

REACTIONS (13)
  - Blood pressure increased [Unknown]
  - Weight decreased [Unknown]
  - Infusion [Unknown]
  - Hypophagia [Unknown]
  - Platelet count decreased [Unknown]
  - Diarrhoea [Unknown]
  - Vomiting [Unknown]
  - Thyroid hormones decreased [Unknown]
  - Headache [Unknown]
  - Pain [Unknown]
  - Abdominal pain [Unknown]
  - Head discomfort [Unknown]
  - Drug intolerance [Unknown]
